FAERS Safety Report 25566040 (Version 1)
Quarter: 2025Q3

REPORT INFORMATION
  Report Type: Spontaneous
  Country: US (occurrence: None)
  Receive Date: 20250715
  Receipt Date: 20250715
  Transmission Date: 20251021
  Serious: No
  Sender: FDA-CTU
  Company Number: None

PATIENT
  Age: 81 Year
  Sex: Female
  Weight: 71.7 kg

DRUGS (1)
  1. VIZAMYL [Suspect]
     Active Substance: FLUTEMETAMOL F-18

REACTIONS (3)
  - Dizziness [None]
  - Flushing [None]
  - Discomfort [None]
